FAERS Safety Report 9644929 (Version 4)
Quarter: 2014Q1

REPORT INFORMATION
  Report Type: Spontaneous
  Country: US (occurrence: US)
  Receive Date: 20131025
  Receipt Date: 20140116
  Transmission Date: 20141002
  Serious: No
  Sender: FDA-Public Use
  Company Number: US-PFIZER INC-2013303280

PATIENT
  Age: 79 Year
  Sex: Female

DRUGS (3)
  1. XELJANZ [Suspect]
     Indication: RHEUMATOID ARTHRITIS
     Dosage: 5 MG, 2X/DAY
     Route: 048
     Dates: start: 20130911, end: 20131021
  2. ACTHAR GEL [Concomitant]
     Dosage: UNK, WEEKLY
  3. ACTH [Concomitant]
     Indication: RHEUMATOID ARTHRITIS
     Dosage: 80 IU, WEEKLY
     Route: 058

REACTIONS (2)
  - Oral herpes [Recovered/Resolved]
  - Herpes virus infection [Recovered/Resolved]
